FAERS Safety Report 7269036-X (Version None)
Quarter: 2011Q1

REPORT INFORMATION
  Report Type: 
  Country: None (occurrence: None)
  Receive Date: 20110202
  Receipt Date: 20110124
  Transmission Date: 20110831
  Serious: Yes (Hospitalization)
  Sender: FDA-Public Use
  Company Number: US-BIOGENIDEC-2010BI022391

PATIENT
  Age: 54 Year
  Sex: Female

DRUGS (7)
  1. CALCIUM WITH VITAMIN D [Concomitant]
  2. TOLTERODINE TARTRATE [Concomitant]
  3. PAXIL [Concomitant]
  4. TOPAMAX [Concomitant]
  5. METFORMIN HCL [Concomitant]
  6. MESALAMINE [Concomitant]
  7. AVONEX [Suspect]
     Indication: MULTIPLE SCLEROSIS
     Route: 030
     Dates: start: 20060531

REACTIONS (5)
  - LIVER DISORDER [None]
  - RENAL DISORDER [None]
  - CROHN'S DISEASE [None]
  - DEEP VEIN THROMBOSIS [None]
  - PULMONARY EMBOLISM [None]
